FAERS Safety Report 20968275 (Version 1)
Quarter: 2022Q2

REPORT INFORMATION
  Report Type: Spontaneous
  Country: US (occurrence: None)
  Receive Date: 20220616
  Receipt Date: 20220616
  Transmission Date: 20220720
  Serious: No
  Sender: FDA-Public Use
  Company Number: None

PATIENT
  Sex: Female

DRUGS (1)
  1. HUMIRA [Suspect]
     Active Substance: ADALIMUMAB
     Indication: Hidradenitis
     Dosage: 40 MG EVERY 7 DAYS SQ?
     Route: 058
     Dates: start: 20220422

REACTIONS (3)
  - Condition aggravated [None]
  - Paraesthesia [None]
  - Therapy non-responder [None]
